FAERS Safety Report 8293795-0 (Version None)
Quarter: 2012Q2

REPORT INFORMATION
  Report Type: 
  Country: None (occurrence: None)
  Receive Date: 20120418
  Receipt Date: 20120411
  Transmission Date: 20120825
  Serious: Yes (Hospitalization)
  Sender: FDA-Public Use
  Company Number: US-BAYER-2011-090117

PATIENT
  Age: 32 Year
  Sex: Female
  Weight: 89.342 kg

DRUGS (24)
  1. YASMIN [Suspect]
     Dosage: UNK
     Route: 048
     Dates: start: 20080101, end: 20090301
  2. ALLEGRA-D 12 HOUR [Concomitant]
     Dosage: UNK UNK, BID
     Route: 048
     Dates: start: 20090217
  3. LISINOPRIL [Concomitant]
     Dosage: 40 MG, UNK
     Route: 048
     Dates: start: 20090203
  4. OMEPRAZOLE [Concomitant]
     Dosage: 40 MG, UNK
     Dates: start: 20090305
  5. FLONASE [Concomitant]
     Dosage: 2 SPRAYS EACH NOSTRIL DAILY
     Route: 045
     Dates: start: 20090317
  6. HYDROCHLOROTHIAZIDE [Concomitant]
     Dosage: 25 MG, UNK
     Route: 048
     Dates: start: 20090114
  7. PRISTIQ [Concomitant]
     Dosage: 50 MG, DAILY
     Route: 048
     Dates: start: 20090114
  8. CEFTIN [Concomitant]
     Dosage: 250 MG, BID
     Route: 048
     Dates: start: 20090217
  9. PRAVASTATIN [Concomitant]
     Dosage: 40 MG, UNK
     Route: 048
     Dates: start: 20090203
  10. PROMETAZIN [Concomitant]
     Dosage: 25 MG, UNK
     Route: 054
     Dates: start: 20090303
  11. SOMA [Concomitant]
     Dosage: 350 MG, QD
     Route: 048
     Dates: start: 20090114
  12. ROCEPHIN [Concomitant]
     Dosage: UNK
     Route: 030
     Dates: start: 20090217
  13. TUSSIONEX [Concomitant]
     Dosage: 1 TEASPOON TWICE A DAY AS NEEDED
     Route: 048
     Dates: start: 20090217
  14. RELENZA [Concomitant]
     Dosage: UNK
     Route: 048
     Dates: start: 20090303
  15. TUSSIN DM [Concomitant]
     Dosage: UNK
     Route: 048
     Dates: start: 20090305
  16. MIRALAX [Concomitant]
     Dosage: 17 G, HS
     Route: 048
     Dates: start: 20090317
  17. PREVACID [Concomitant]
     Dosage: 30 MG, UNK
     Route: 048
     Dates: start: 20090114
  18. DEXTROAMPHETAMINE [Concomitant]
     Dosage: 5 MG, DAILY
     Route: 048
     Dates: start: 20090305
  19. PROTONIX [Concomitant]
     Dosage: 40 MG, DAILY
     Route: 048
     Dates: start: 20090317
  20. FACTIVE [Concomitant]
     Dosage: 320 MG, 5ID
     Route: 048
     Dates: start: 20090304
  21. DROSPIRENONE AND ETHINYL ESTRADIOL [Suspect]
     Route: 048
     Dates: start: 20080101, end: 20090301
  22. LEVORA 0.15/30-28 [Concomitant]
     Dosage: 0.15 MG, DAILY
     Route: 048
     Dates: start: 20090114
  23. LUNESTA [Concomitant]
     Dosage: 2 MG, HS
     Route: 048
     Dates: start: 20090317
  24. MOBIC [Concomitant]
     Dosage: 15 MG, DAILY
     Route: 048
     Dates: start: 20090317

REACTIONS (7)
  - DEEP VEIN THROMBOSIS [None]
  - PAIN [None]
  - OEDEMA PERIPHERAL [None]
  - EMOTIONAL DISTRESS [None]
  - DEPRESSION [None]
  - INJURY [None]
  - ANXIETY [None]
